FAERS Safety Report 11132285 (Version 1)
Quarter: 2015Q2

REPORT INFORMATION
  Report Type: Spontaneous
  Country: US (occurrence: None)
  Receive Date: 20150521
  Receipt Date: 20150521
  Transmission Date: 20150821
  Serious: No
  Sender: FDA-Public Use
  Company Number: None

PATIENT
  Age: 58 Year
  Sex: Female
  Weight: 58.97 kg

DRUGS (9)
  1. TYLENOL [Concomitant]
     Active Substance: ACETAMINOPHEN
  2. NASONEX [Concomitant]
     Active Substance: MOMETASONE FUROATE
  3. PROBIOTIC [Concomitant]
     Active Substance: PROBIOTICS NOS
  4. TRANQDOL [Concomitant]
  5. B VITAMIN COMPLEX [Concomitant]
  6. RECLAST [Suspect]
     Active Substance: ZOLEDRONIC ACID
     Indication: OSTEOPOROSIS
     Dates: start: 20150417, end: 20150417
  7. TIZANIDINE (TIZANIDINE) [Concomitant]
     Active Substance: TIZANIDINE
  8. CALCIUM [Concomitant]
     Active Substance: CALCIUM
  9. MULTIVITAMIN [Concomitant]
     Active Substance: VITAMINS

REACTIONS (10)
  - Fatigue [None]
  - Vomiting [None]
  - Costochondritis [None]
  - Nausea [None]
  - Myalgia [None]
  - Headache [None]
  - Dizziness [None]
  - Decreased appetite [None]
  - Musculoskeletal chest pain [None]
  - Pyrexia [None]

NARRATIVE: CASE EVENT DATE: 20150511
